FAERS Safety Report 8723168 (Version 6)
Quarter: 2013Q1

REPORT INFORMATION
  Report Type: Spontaneous
  Country: US (occurrence: US)
  Receive Date: 20120814
  Receipt Date: 20130320
  Transmission Date: 20140127
  Serious: Yes (Hospitalization, Other)
  Sender: FDA-Public Use
  Company Number: US-009507513-1208USA003158

PATIENT
  Sex: Female
  Weight: 47.17 kg

DRUGS (3)
  1. FOSAMAX [Suspect]
     Indication: OSTEOPOROSIS
     Dosage: 70 MG, UNK
     Route: 048
     Dates: start: 20020927, end: 20071006
  2. ALENDRONATE SODIUM [Suspect]
     Indication: OSTEOPOROSIS
     Dosage: 70 MG, UNK
     Route: 048
     Dates: start: 20071031, end: 201010
  3. CALCIUM (UNSPECIFIED) [Concomitant]
     Dosage: UNK
     Dates: start: 2002

REACTIONS (14)
  - Femur fracture [Unknown]
  - Intramedullary rod insertion [Unknown]
  - Femur fracture [Recovered/Resolved]
  - Fall [Unknown]
  - Foot fracture [Unknown]
  - Low turnover osteopathy [Unknown]
  - Urinary incontinence [Unknown]
  - Urinary tract infection [Unknown]
  - Bursitis [Unknown]
  - Spinal compression fracture [Unknown]
  - Kyphosis [Unknown]
  - Intervertebral disc degeneration [Unknown]
  - Intervertebral disc protrusion [Unknown]
  - Pain in extremity [Unknown]
